FAERS Safety Report 18477793 (Version 1)
Quarter: 2020Q4

REPORT INFORMATION
  Report Type: Spontaneous
  Country: US (occurrence: US)
  Receive Date: 20201108
  Receipt Date: 20201108
  Transmission Date: 20210114
  Serious: No
  Sender: FDA-Public Use
  Company Number: US-009507513-2011USA000748

PATIENT
  Sex: Female

DRUGS (2)
  1. NEXPLANON [Suspect]
     Active Substance: ETONOGESTREL
     Indication: CONTRACEPTION
     Dosage: 68 MILLIGRAM IMPLANT, EVERY 3 YEARS (Q 3 YEARS)
     Route: 059
     Dates: end: 202010
  2. NEXPLANON [Suspect]
     Active Substance: ETONOGESTREL
     Dosage: 68 MILLIGRAM IMPLANT, EVERY 3 YEARS (Q 3 YEARS)
     Route: 059
     Dates: start: 202010

REACTIONS (1)
  - Implant site scar [Unknown]
